FAERS Safety Report 21939740 (Version 1)
Quarter: 2023Q1

REPORT INFORMATION
  Report Type: Spontaneous
  Country: US (occurrence: US)
  Receive Date: 20230201
  Receipt Date: 20230201
  Transmission Date: 20230418
  Serious: No
  Sender: FDA-Public Use
  Company Number: US-EXELIXIS-CABO-22048802

PATIENT

DRUGS (3)
  1. COMETRIQ [Suspect]
     Active Substance: CABOZANTINIB S-MALATE
     Indication: Medullary thyroid cancer
     Dosage: 140 MG, QD
  2. COMETRIQ [Suspect]
     Active Substance: CABOZANTINIB S-MALATE
     Dosage: 100 MG, QD
  3. COMETRIQ [Suspect]
     Active Substance: CABOZANTINIB S-MALATE
     Dosage: 60 MG, QD

REACTIONS (2)
  - Erythema [Recovering/Resolving]
  - Stomatitis [Recovering/Resolving]

NARRATIVE: CASE EVENT DATE: 20211201
